FAERS Safety Report 7259279-3 (Version None)
Quarter: 2011Q1

REPORT INFORMATION
  Report Type: 
  Country: None (occurrence: None)
  Receive Date: 20110129
  Receipt Date: 20100727
  Transmission Date: 20110831
  Serious: No
  Sender: FDA-Public Use
  Company Number: US-ABBOTT-10P-163-0660857-00

PATIENT
  Sex: Female
  Weight: 52.21 kg

DRUGS (2)
  1. HUMIRA [Suspect]
     Indication: CROHN'S DISEASE
     Route: 058
     Dates: start: 20090301, end: 20090901
  2. HUMIRA [Suspect]
     Indication: RHEUMATOID ARTHRITIS
     Route: 058
     Dates: start: 20100707

REACTIONS (7)
  - HYPOAESTHESIA [None]
  - LYMPHADENOPATHY [None]
  - GYNAECOLOGICAL CHLAMYDIA INFECTION [None]
  - PRURITUS [None]
  - INFECTIOUS MONONUCLEOSIS [None]
  - LYMPHOGRANULOMA VENEREUM [None]
  - PAIN IN EXTREMITY [None]
